FAERS Safety Report 8212293-3 (Version None)
Quarter: 2012Q1

REPORT INFORMATION
  Report Type: 
  Country: None (occurrence: None)
  Receive Date: 20120315
  Receipt Date: 20120229
  Transmission Date: 20120608
  Serious: Yes (Death, Hospitalization)
  Sender: FDA-Public Use
  Company Number: AU-ROCHE-1047023

PATIENT
  Sex: Female

DRUGS (3)
  1. RAMIPRIL [Concomitant]
     Indication: HYPERTENSION
  2. ISOPTIN [Concomitant]
     Indication: HYPERTENSION
  3. RANIBIZUMAB [Suspect]
     Indication: PRODUCT USED FOR UNKNOWN INDICATION
     Route: 050
     Dates: start: 20080807

REACTIONS (6)
  - DEATH [None]
  - CARDIAC FAILURE CONGESTIVE [None]
  - RIB FRACTURE [None]
  - MULTIPLE MYELOMA [None]
  - RENAL FAILURE [None]
  - FALL [None]
